FAERS Safety Report 7520267-0 (Version None)
Quarter: 2011Q2

REPORT INFORMATION
  Report Type: 
  Country: None (occurrence: None)
  Receive Date: 20110602
  Receipt Date: 20110316
  Transmission Date: 20111010
  Serious: No
  Sender: FDA-Public Use
  Company Number: US-BAYER-2011-027526

PATIENT
  Age: 33 Year
  Sex: Female
  Weight: 59 kg

DRUGS (1)
  1. ALEVE (CAPLET) [Suspect]
     Indication: MYALGIA
     Dosage: 4 DF, ONCE
     Route: 048
     Dates: start: 20110316

REACTIONS (1)
  - NO ADVERSE EVENT [None]
